FAERS Safety Report 15679113 (Version 3)
Quarter: 2019Q4

REPORT INFORMATION
  Report Type: Spontaneous
  Country: HU (occurrence: HU)
  Receive Date: 20181203
  Receipt Date: 20191031
  Transmission Date: 20200122
  Serious: Yes (Other)
  Sender: FDA-Public Use
  Company Number: HU-ROCHE-2221801

PATIENT
  Age: 40 Year
  Sex: Male

DRUGS (4)
  1. METHOTREXATE. [Suspect]
     Active Substance: METHOTREXATE
     Indication: DIFFUSE LARGE B-CELL LYMPHOMA
     Dosage: RECEIVED MOST RECENT DOSE OF METHOTREXATE IN APR/2014
     Route: 065
     Dates: start: 201401
  2. CARBAMAZEPINE. [Concomitant]
     Active Substance: CARBAMAZEPINE
     Indication: PRODUCT USED FOR UNKNOWN INDICATION
     Dosage: UNK
     Route: 065
  3. RITUXIMAB. [Suspect]
     Active Substance: RITUXIMAB
     Indication: DIFFUSE LARGE B-CELL LYMPHOMA
     Dosage: RECEIVED MOST RECENT DOSE OF RITUXIMAB IN APR/2014
     Route: 065
     Dates: start: 201401
  4. CYTARABINE. [Suspect]
     Active Substance: CYTARABINE
     Indication: DIFFUSE LARGE B-CELL LYMPHOMA
     Dosage: RECEIVED MOST RECENT DOSE OF CYTARABINE IN APR/2014
     Route: 065
     Dates: start: 201401

REACTIONS (2)
  - Diffuse large B-cell lymphoma [Recovered/Resolved]
  - Malignant neoplasm progression [Recovered/Resolved]
